FAERS Safety Report 24989495 (Version 11)
Quarter: 2025Q3

REPORT INFORMATION
  Report Type: Spontaneous
  Country: CA (occurrence: CA)
  Receive Date: 20250220
  Receipt Date: 20250909
  Transmission Date: 20251020
  Serious: Yes (Other)
  Sender: KARYOPHARM THERAPEUTICS
  Company Number: CA-KARYOPHARM-2024KPT001767

PATIENT

DRUGS (8)
  1. XPOVIO [Suspect]
     Active Substance: SELINEXOR
     Indication: Plasma cell myeloma
     Route: 048
     Dates: start: 20241021
  2. XPOVIO [Suspect]
     Active Substance: SELINEXOR
     Route: 048
     Dates: start: 2024, end: 202411
  3. XPOVIO [Suspect]
     Active Substance: SELINEXOR
     Route: 048
     Dates: start: 202411
  4. XPOVIO [Suspect]
     Active Substance: SELINEXOR
     Route: 048
     Dates: start: 20250630, end: 202509
  5. BORTEZOMIB [Concomitant]
     Active Substance: BORTEZOMIB
  6. DEXAMETHASONE [Concomitant]
     Active Substance: DEXAMETHASONE
  7. OLANZAPINE [Concomitant]
     Active Substance: OLANZAPINE
  8. AKYNZEO (NETUPITANT\PALONOSETRON HYDROCHLORIDE) [Concomitant]
     Active Substance: NETUPITANT\PALONOSETRON HYDROCHLORIDE

REACTIONS (18)
  - Basal cell carcinoma [Unknown]
  - Retching [Unknown]
  - Somnolence [Unknown]
  - Productive cough [Not Recovered/Not Resolved]
  - Nasopharyngitis [Unknown]
  - Night sweats [Recovering/Resolving]
  - Alopecia [Unknown]
  - Hair texture abnormal [Unknown]
  - Spondylitis [Unknown]
  - Fall [Unknown]
  - Thirst [Unknown]
  - Cellulitis [Not Recovered/Not Resolved]
  - Fatigue [Not Recovered/Not Resolved]
  - Nausea [Recovered/Resolved]
  - Diarrhoea [Recovered/Resolved]
  - Weight decreased [Unknown]
  - Confusional state [Unknown]
  - Nausea [Unknown]

NARRATIVE: CASE EVENT DATE: 20240101
